FAERS Safety Report 5040008-9 (Version None)
Quarter: 2006Q2

REPORT INFORMATION
  Report Type: 
  Country: None (occurrence: None)
  Receive Date: 20060630
  Receipt Date: 20060621
  Transmission Date: 20061013
  Serious: Yes (Hospitalization)
  Sender: FDA-Public Use
  Company Number: US-JNJFOC-20060606272

PATIENT
  Sex: Female
  Weight: 40.82 kg

DRUGS (10)
  1. FENTANYL TRANSDERMAL SYSTEM [Suspect]
     Route: 062
  2. FENTANYL TRANSDERMAL SYSTEM [Suspect]
     Route: 062
  3. FENTANYL TRANSDERMAL SYSTEM [Suspect]
     Indication: PAIN
     Route: 062
  4. NORCO [Concomitant]
     Indication: PAIN
     Dosage: 10 MG HYDROCODONE/325 MG ACETAMINOPHEN, 4 TIMES DAILY
     Route: 048
  5. XANAX [Concomitant]
     Indication: ANXIETY
     Route: 048
  6. LEXAPRO [Concomitant]
     Indication: DRUG USE FOR UNKNOWN INDICATION
     Route: 048
  7. EFFEXOR [Concomitant]
     Indication: AFFECTIVE DISORDER
     Route: 048
  8. SPIRIVA [Concomitant]
     Indication: CHRONIC OBSTRUCTIVE PULMONARY DISEASE
     Route: 055
  9. FORADIL [Concomitant]
     Indication: CHRONIC OBSTRUCTIVE PULMONARY DISEASE
     Route: 055
  10. ADVAIR DISKUS 100/50 [Concomitant]
     Indication: CHRONIC OBSTRUCTIVE PULMONARY DISEASE
     Dosage: FLUTICASONE PROPIONATE 250 UG/SALMETEROL 50 UG, TWICE DAILY, INHALATION
     Route: 055

REACTIONS (6)
  - CONVULSION [None]
  - DIZZINESS [None]
  - DRUG TOXICITY [None]
  - HALLUCINATION [None]
  - NAUSEA [None]
  - THERAPEUTIC RESPONSE DECREASED [None]
